FAERS Safety Report 10239042 (Version 1)
Quarter: 2014Q2

REPORT INFORMATION
  Report Type: Spontaneous
  Country: US (occurrence: US)
  Receive Date: 20140616
  Receipt Date: 20140616
  Transmission Date: 20141212
  Serious: Yes (Other)
  Sender: FDA-Public Use
  Company Number: US-PFIZER INC-2014160373

PATIENT
  Sex: Female

DRUGS (3)
  1. NEURONTIN [Suspect]
     Dosage: 300 MG, UNK
  2. TRICOSAL [Concomitant]
     Dosage: UNK, 2X/DAY
  3. HYDROCODONE [Concomitant]
     Dosage: UNK, 1X/DAY

REACTIONS (5)
  - Eye disorder [Unknown]
  - Retinal tear [Unknown]
  - Visual impairment [Unknown]
  - Malaise [Unknown]
  - Scar [Unknown]
